FAERS Safety Report 15399325 (Version 1)
Quarter: 2018Q3

REPORT INFORMATION
  Report Type: Spontaneous
  Country: US (occurrence: US)
  Receive Date: 20180918
  Receipt Date: 20180918
  Transmission Date: 20181010
  Serious: Yes (Hospitalization)
  Sender: FDA-Public Use
  Company Number: US-VIFOR (INTERNATIONAL) INC.-VIT-2018-09003

PATIENT
  Age: 80 Year
  Sex: Male

DRUGS (14)
  1. OMEPRAZOLE. [Concomitant]
     Active Substance: OMEPRAZOLE
  2. LATANOPROST. [Concomitant]
     Active Substance: LATANOPROST
  3. METOPROLOL SUCCINATE. [Concomitant]
     Active Substance: METOPROLOL SUCCINATE
  4. ISOSORBIDE MONONITRATE. [Concomitant]
     Active Substance: ISOSORBIDE MONONITRATE
  5. SLOW?MAG [Concomitant]
     Active Substance: MAGNESIUM CHLORIDE
  6. ATORVASTATIN CALCIUM. [Concomitant]
     Active Substance: ATORVASTATIN CALCIUM
  7. HUMALOG [Concomitant]
     Active Substance: INSULIN LISPRO
  8. ASPIRIN. [Concomitant]
     Active Substance: ASPIRIN
  9. AMLODIPINE BESYLATE. [Concomitant]
     Active Substance: AMLODIPINE BESYLATE
  10. NITROSTAT [Concomitant]
     Active Substance: NITROGLYCERIN
  11. DIGITEK [Concomitant]
     Active Substance: DIGOXIN
  12. LANTUS SOLOSTAR [Concomitant]
     Active Substance: INSULIN GLARGINE
  13. CLOPIDOGREL BISULFATE. [Concomitant]
     Active Substance: CLOPIDOGREL BISULFATE
  14. VELTASSA [Suspect]
     Active Substance: PATIROMER
     Indication: HYPERKALAEMIA
     Route: 048
     Dates: start: 20160913

REACTIONS (2)
  - Off label use [Unknown]
  - Eye operation [Unknown]

NARRATIVE: CASE EVENT DATE: 201808
